FAERS Safety Report 7836324-5 (Version None)
Quarter: 2011Q4

REPORT INFORMATION
  Report Type: 
  Country: None (occurrence: None)
  Receive Date: 20111024
  Receipt Date: 20110211
  Transmission Date: 20120403
  Serious: No
  Sender: FDA-Public Use
  Company Number: US-ABBOTT-11P-163-0705362-00

PATIENT
  Sex: Female
  Weight: 53.118 kg

DRUGS (1)
  1. LUPRON DEPOT [Suspect]
     Indication: ENDOMETRIOSIS
     Route: 030
     Dates: start: 20100901

REACTIONS (4)
  - ROAD TRAFFIC ACCIDENT [None]
  - PAIN [None]
  - POST-TRAUMATIC NECK SYNDROME [None]
  - MYALGIA [None]
